FAERS Safety Report 18527464 (Version 2)
Quarter: 2021Q3

REPORT INFORMATION
  Report Type: Report from Study
  Country: US (occurrence: US)
  Receive Date: 20201120
  Receipt Date: 20210719
  Transmission Date: 20211014
  Serious: Yes (Death, Other)
  Sender: FDA-Public Use
  Company Number: US-TAKEDA-US202017479

PATIENT
  Age: 63 Year
  Sex: Male

DRUGS (8)
  1. TEDUGLUTIDE [Suspect]
     Active Substance: TEDUGLUTIDE
     Indication: SHORT-BOWEL SYNDROME
     Dosage: 0.5060, 1X/DAY:QD, QD
     Route: 058
     Dates: start: 20170905
  2. TEDUGLUTIDE [Suspect]
     Active Substance: TEDUGLUTIDE
     Indication: SHORT-BOWEL SYNDROME
     Dosage: 0.5060, 1X/DAY:QD, QD
     Route: 058
     Dates: start: 20170905
  3. TEDUGLUTIDE [Suspect]
     Active Substance: TEDUGLUTIDE
     Indication: SHORT-BOWEL SYNDROME
     Dosage: 0.5060, 1X/DAY:QD, QD
     Route: 058
     Dates: start: 20170905
  4. TEDUGLUTIDE [Suspect]
     Active Substance: TEDUGLUTIDE
     Indication: SHORT-BOWEL SYNDROME
     Dosage: 0.5060, 1X/DAY:QD, QD
     Route: 058
     Dates: start: 20170905
  5. TEDUGLUTIDE [Suspect]
     Active Substance: TEDUGLUTIDE
     Dosage: 0.255 MILLILITER, QD
     Route: 058
     Dates: start: 20190805, end: 20210708
  6. TEDUGLUTIDE [Suspect]
     Active Substance: TEDUGLUTIDE
     Dosage: 0.255 MILLILITER, QD
     Route: 058
     Dates: start: 20190805, end: 20210708
  7. TEDUGLUTIDE [Suspect]
     Active Substance: TEDUGLUTIDE
     Dosage: 0.255 MILLILITER, QD
     Route: 058
     Dates: start: 20190805, end: 20210708
  8. TEDUGLUTIDE [Suspect]
     Active Substance: TEDUGLUTIDE
     Dosage: 0.255 MILLILITER, QD
     Route: 058
     Dates: start: 20190805, end: 20210708

REACTIONS (2)
  - Product dose omission issue [Unknown]
  - Death [Fatal]

NARRATIVE: CASE EVENT DATE: 20210708
